FAERS Safety Report 5670669-2 (Version None)
Quarter: 2008Q1

REPORT INFORMATION
  Report Type: 
  Country: None (occurrence: None)
  Receive Date: 20080314
  Receipt Date: 20080314
  Transmission Date: 20080703
  Serious: Yes (Other)
  Sender: FDA-Public Use
  Company Number: None

PATIENT
  Sex: Male

DRUGS (1)
  1. GADOBENATE DIMEGLUMINE BRACCO [Suspect]
     Indication: NUCLEAR MAGNETIC RESONANCE IMAGING
     Dosage: 15 ML ONCE IV
     Route: 042
     Dates: start: 20080305, end: 20080305

REACTIONS (5)
  - CHEST DISCOMFORT [None]
  - CONTRAST MEDIA REACTION [None]
  - EYE IRRITATION [None]
  - LACRIMATION INCREASED [None]
  - WHEEZING [None]
